FAERS Safety Report 16477219 (Version 1)
Quarter: 2019Q2

REPORT INFORMATION
  Report Type: Spontaneous
  Country: US (occurrence: US)
  Receive Date: 20190626
  Receipt Date: 20190626
  Transmission Date: 20190711
  Serious: No
  Sender: FDA-Public Use
  Company Number: US-TEVA-2019-US-1059477

PATIENT

DRUGS (1)
  1. ALBUTEROL INHALER [Suspect]
     Active Substance: ALBUTEROL
     Route: 055

REACTIONS (3)
  - Device issue [Unknown]
  - Drug ineffective [Unknown]
  - Asthma [Unknown]
